FAERS Safety Report 8115387-6 (Version None)
Quarter: 2012Q1

REPORT INFORMATION
  Report Type: 
  Country: None (occurrence: None)
  Receive Date: 20120206
  Receipt Date: 20120206
  Transmission Date: 20120608
  Serious: Yes (Other)
  Sender: FDA-Public Use
  Company Number: None

PATIENT
  Age: 43 Year
  Sex: Female
  Weight: 95.254 kg

DRUGS (1)
  1. NAPROXEN SODIUM [Suspect]
     Indication: BACK PAIN
     Dosage: 1 TABLET
     Route: 048
     Dates: start: 20120201, end: 20120203

REACTIONS (8)
  - CONTUSION [None]
  - URTICARIA [None]
  - DYSPHONIA [None]
  - NAUSEA [None]
  - NON-CARDIAC CHEST PAIN [None]
  - PRURITUS [None]
  - FOREIGN BODY [None]
  - DIARRHOEA [None]
